FAERS Safety Report 9419189 (Version 3)
Quarter: 2014Q1

REPORT INFORMATION
  Report Type: Report from Study
  Country: US (occurrence: US)
  Receive Date: 20130725
  Receipt Date: 20140124
  Transmission Date: 20141002
  Serious: Yes (Life-Threatening, Hospitalization)
  Sender: FDA-Public Use
  Company Number: US-JNJFOC-20130711821

PATIENT
  Age: 33 Year
  Sex: Male
  Weight: 96.16 kg

DRUGS (1)
  1. STELARA [Suspect]
     Indication: PSORIASIS
     Route: 058
     Dates: start: 201201, end: 20120818

REACTIONS (1)
  - Pulmonary embolism [Recovered/Resolved]
